FAERS Safety Report 9956374 (Version 1)
Quarter: 2014Q1

REPORT INFORMATION
  Report Type: Spontaneous
  Country: FR (occurrence: FR)
  Receive Date: 20140304
  Receipt Date: 20140304
  Transmission Date: 20141002
  Serious: Yes (Hospitalization)
  Sender: FDA-Public Use
  Company Number: FR-ASTRAZENECA-2014SE14537

PATIENT
  Age: 24031 Day
  Sex: Female

DRUGS (3)
  1. INEXIUM [Suspect]
     Dosage: DAILY
     Route: 048
     Dates: start: 20131107, end: 20131217
  2. PIPERACILLINE [Suspect]
     Dosage: DAILY
     Route: 041
     Dates: start: 20131114, end: 20131201
  3. CIPROFLOXACINE ARROW [Suspect]
     Dosage: DAILY
     Route: 048
     Dates: start: 20131114, end: 20131201

REACTIONS (1)
  - Drug reaction with eosinophilia and systemic symptoms [Recovering/Resolving]
